FAERS Safety Report 4966285-8 (Version None)
Quarter: 2006Q2

REPORT INFORMATION
  Report Type: 
  Country: None (occurrence: None)
  Receive Date: 20060407
  Receipt Date: 20051122
  Transmission Date: 20061013
  Serious: Yes (Hospitalization, Other)
  Sender: FDA-Public Use
  Company Number: US-MERCK-0511USA03788

PATIENT
  Age: 68 Year
  Sex: Male
  Weight: 82 kg

DRUGS (3)
  1. VIOXX [Suspect]
     Indication: OSTEOARTHRITIS
     Route: 048
     Dates: start: 20010615, end: 20040930
  2. FOSAMAX [Concomitant]
     Route: 048
  3. ASPIRIN [Concomitant]
     Route: 065

REACTIONS (15)
  - AORTIC ANEURYSM [None]
  - CORONARY ARTERY DISEASE [None]
  - DIVERTICULUM [None]
  - ERECTILE DYSFUNCTION [None]
  - GASTROINTESTINAL DISORDER [None]
  - GRAFT THROMBOSIS [None]
  - HEPATITIS C ANTIBODY POSITIVE [None]
  - HYPOAESTHESIA [None]
  - INTERMITTENT CLAUDICATION [None]
  - MYOCARDIAL INFARCTION [None]
  - MYOCARDIAL ISCHAEMIA [None]
  - ONYCHOMYCOSIS [None]
  - PERIPHERAL ARTERIAL OCCLUSIVE DISEASE [None]
  - PULSE ABSENT [None]
  - ROSACEA [None]
